FAERS Safety Report 10792137 (Version 1)
Quarter: 2015Q1

REPORT INFORMATION
  Report Type: Spontaneous
  Country: US (occurrence: US)
  Receive Date: 20150213
  Receipt Date: 20150213
  Transmission Date: 20150721
  Serious: No
  Sender: FDA-Public Use
  Company Number: US-GLAXOSMITHKLINE-A1081401A

PATIENT

DRUGS (2)
  1. VENTOLIN [Suspect]
     Active Substance: ALBUTEROL SULFATE
     Indication: DYSPNOEA
     Route: 055
  2. MOTRIN [Concomitant]
     Active Substance: IBUPROFEN

REACTIONS (7)
  - Dyspnoea [Recovering/Resolving]
  - Nasal discomfort [Unknown]
  - Paraesthesia [Unknown]
  - Sinusitis [Unknown]
  - Nasal pruritus [Unknown]
  - Rhinorrhoea [Unknown]
  - Ill-defined disorder [Unknown]

NARRATIVE: CASE EVENT DATE: 2013
